FAERS Safety Report 9504770 (Version 2)
Quarter: 2013Q3

REPORT INFORMATION
  Report Type: Spontaneous
  Country: US (occurrence: US)
  Receive Date: 20130906
  Receipt Date: 20130925
  Transmission Date: 20140515
  Serious: Yes (Death)
  Sender: FDA-Public Use
  Company Number: US-B.I. PHARMACEUTICALS,INC./RIDGEFIELD-2013-BI-27524BP

PATIENT
  Age: 55 Year
  Sex: Female

DRUGS (13)
  1. SPIRIVA [Suspect]
     Indication: PRODUCT USED FOR UNKNOWN INDICATION
     Dosage: 18 MCG
     Route: 055
     Dates: start: 201307
  2. SYNTHROID [Concomitant]
     Route: 048
  3. COUMADIN [Concomitant]
     Route: 048
  4. ASPIRIN [Concomitant]
     Route: 048
  5. NITROGLYCERIN [Concomitant]
     Route: 048
  6. PROZAC [Concomitant]
     Route: 048
  7. DILTIAZEM [Concomitant]
     Route: 048
  8. KLONOPIN [Concomitant]
     Route: 048
  9. POTASSIUM [Concomitant]
     Route: 048
  10. COREG [Concomitant]
     Route: 048
  11. LASIX [Concomitant]
     Route: 048
  12. EPIPEN [Concomitant]
     Route: 058
  13. VENTOLIN [Concomitant]
     Route: 055

REACTIONS (1)
  - Death [Fatal]
